FAERS Safety Report 7415938-0 (Version None)
Quarter: 2011Q2

REPORT INFORMATION
  Report Type: 
  Country: None (occurrence: None)
  Receive Date: 20110414
  Receipt Date: 20110405
  Transmission Date: 20111010
  Serious: Yes (Other)
  Sender: FDA-Public Use
  Company Number: PHHY2011KR28375

PATIENT
  Age: 71 Year
  Sex: Male

DRUGS (2)
  1. METRONIDAZOLE [Suspect]
     Indication: HAEMATOCHEZIA
     Route: 042
  2. METRONIDAZOLE [Suspect]
     Route: 048

REACTIONS (6)
  - DYSARTHRIA [None]
  - ATAXIA [None]
  - TOXICITY TO VARIOUS AGENTS [None]
  - CEREBELLAR SYNDROME [None]
  - SOMNOLENCE [None]
  - SLOW RESPONSE TO STIMULI [None]
